FAERS Safety Report 25116790 (Version 1)
Quarter: 2025Q1

REPORT INFORMATION
  Report Type: Report from Study
  Country: US (occurrence: US)
  Receive Date: 20250325
  Receipt Date: 20250325
  Transmission Date: 20250409
  Serious: Yes (Other)
  Sender: ABBVIE
  Company Number: US-ABBVIE-6190926

PATIENT
  Age: 60 Year
  Sex: Female

DRUGS (1)
  1. CREON [Suspect]
     Active Substance: PANCRELIPASE AMYLASE\PANCRELIPASE LIPASE\PANCRELIPASE PROTEASE
     Indication: Product used for unknown indication
     Route: 048
     Dates: start: 20230101

REACTIONS (5)
  - Chemotherapy [Recovering/Resolving]
  - Decreased appetite [Recovering/Resolving]
  - Steatorrhoea [Not Recovered/Not Resolved]
  - Wrong technique in product usage process [Unknown]
  - Anal incontinence [Not Recovered/Not Resolved]

NARRATIVE: CASE EVENT DATE: 20230201
